FAERS Safety Report 10238646 (Version 1)
Quarter: 2014Q2

REPORT INFORMATION
  Report Type: Spontaneous
  Country: US (occurrence: US)
  Receive Date: 20140616
  Receipt Date: 20140616
  Transmission Date: 20141212
  Serious: No
  Sender: FDA-Public Use
  Company Number: US-BAYER-2014-083866

PATIENT
  Age: 74 Year
  Sex: Male
  Weight: 70 kg

DRUGS (2)
  1. ALEVE CAPLET [Suspect]
     Indication: TOOTHACHE
     Dosage: 1-2 DF, BID
     Route: 048
     Dates: start: 20140602
  2. ALEVE CAPLET [Suspect]
     Indication: HEADACHE

REACTIONS (1)
  - Drug ineffective [Unknown]
